FAERS Safety Report 26046602 (Version 1)
Quarter: 2025Q4

REPORT INFORMATION
  Report Type: Spontaneous
  Country: US (occurrence: US)
  Receive Date: 20251114
  Receipt Date: 20251114
  Transmission Date: 20260118
  Serious: No
  Sender: OPTINOSE INC
  Company Number: US-OptiNose US, Inc-2025OPT000028

PATIENT
  Age: 50 Year
  Sex: Female

DRUGS (2)
  1. XHANCE [Suspect]
     Active Substance: FLUTICASONE PROPIONATE
     Indication: Sinus polyp degeneration
     Dosage: 186 MICROGRAM, BID
     Route: 045
     Dates: start: 20241213, end: 20250110
  2. DEVICE [Suspect]
     Active Substance: DEVICE
     Indication: Sinus polyp degeneration
     Dosage: UNK UNK

REACTIONS (2)
  - Blood glucose increased [Recovering/Resolving]
  - Off label use [Unknown]

NARRATIVE: CASE EVENT DATE: 20241214
